FAERS Safety Report 17430445 (Version 1)
Quarter: 2020Q1

REPORT INFORMATION
  Report Type: Spontaneous
  Country: US (occurrence: US)
  Receive Date: 20200216
  Receipt Date: 20200216
  Transmission Date: 20200409
  Serious: No
  Sender: FDA-Public Use
  Company Number: None

PATIENT
  Age: 65 Year
  Sex: Male
  Weight: 96.75 kg

DRUGS (8)
  1. SENNA [Concomitant]
     Active Substance: SENNA LEAF\SENNOSIDES\SENNOSIDES A AND B
  2. NOURIANZ [Suspect]
     Active Substance: ISTRADEFYLLINE
     Indication: PARKINSONISM
     Dosage: ?          QUANTITY:2 TABLET(S);?
     Route: 048
     Dates: start: 20200131, end: 20200214
  3. DBS (DEEP BRAIN STIMULATION) [Concomitant]
  4. ATORVASTATIN [Concomitant]
     Active Substance: ATORVASTATIN
  5. ATENOLOL. [Concomitant]
     Active Substance: ATENOLOL
  6. AZILECT [Concomitant]
     Active Substance: RASAGILINE MESYLATE
  7. MYRBETRIQ [Concomitant]
     Active Substance: MIRABEGRON
  8. NUEDEXTA [Concomitant]
     Active Substance: DEXTROMETHORPHAN HYDROBROMIDE\QUINIDINE SULFATE

REACTIONS (10)
  - Insomnia [None]
  - Confusional state [None]
  - Hallucination [None]
  - Catatonia [None]
  - Mania [None]
  - Agitation [None]
  - Gait disturbance [None]
  - Enuresis [None]
  - Fall [None]
  - Disorientation [None]

NARRATIVE: CASE EVENT DATE: 20200213
